FAERS Safety Report 5087585-X (Version None)
Quarter: 2006Q3

REPORT INFORMATION
  Report Type: 
  Country: None (occurrence: None)
  Receive Date: 20060824
  Receipt Date: 20060814
  Transmission Date: 20061208
  Serious: Yes (Other)
  Sender: FDA-Public Use
  Company Number: PHNU2006DE02808

PATIENT
  Age: 71 Year
  Sex: Female

DRUGS (1)
  1. CIBACEN [Suspect]
     Indication: HYPERTENSION
     Dosage: 5 MG, QD
     Dates: start: 20040101, end: 20060701

REACTIONS (8)
  - BRONCHITIS [None]
  - CATARACT [None]
  - CATARACT OPERATION [None]
  - COUGH [None]
  - MACULAR HOLE [None]
  - PRODUCTIVE COUGH [None]
  - RETINAL OPERATION [None]
  - SYNCOPE [None]
